FAERS Safety Report 6960552-4 (Version None)
Quarter: 2010Q3

REPORT INFORMATION
  Report Type: 
  Country: None (occurrence: None)
  Receive Date: 20100901
  Receipt Date: 20100830
  Transmission Date: 20110219
  Serious: Yes (Other)
  Sender: FDA-Public Use
  Company Number: US-PURDUE-USA-2010-0046223

PATIENT
  Age: 75 Year
  Sex: Male

DRUGS (1)
  1. OXYCONTIN [Suspect]
     Indication: PAIN
     Dosage: 80 MG, TID
     Dates: start: 20100827

REACTIONS (4)
  - DIARRHOEA [None]
  - FREQUENT BOWEL MOVEMENTS [None]
  - INCREASED UPPER AIRWAY SECRETION [None]
  - PHARYNGEAL OEDEMA [None]
